FAERS Safety Report 9097899 (Version 1)
Quarter: 2013Q1

REPORT INFORMATION
  Report Type: Spontaneous
  Country: US (occurrence: US)
  Receive Date: 20130212
  Receipt Date: 20130212
  Transmission Date: 20140127
  Serious: No
  Sender: FDA-Public Use
  Company Number: US-PFIZER INC-2013054590

PATIENT
  Age: 42 Year
  Sex: Female

DRUGS (2)
  1. CELEBREX [Suspect]
     Indication: DYSMENORRHOEA
     Dosage: UNK
  2. CELEBREX [Suspect]
     Indication: ENDOMETRIOSIS

REACTIONS (2)
  - Off label use [Unknown]
  - Therapeutic response unexpected [Unknown]
